FAERS Safety Report 24120122 (Version 1)
Quarter: 2024Q3

REPORT INFORMATION
  Report Type: Spontaneous
  Country: US (occurrence: US)
  Receive Date: 20240722
  Receipt Date: 20240722
  Transmission Date: 20241017
  Serious: Yes (Other)
  Sender: PFIZER
  Company Number: US-PFIZER INC-202400219230

PATIENT
  Age: 56 Year
  Sex: Female

DRUGS (1)
  1. XELJANZ [Suspect]
     Active Substance: TOFACITINIB CITRATE
     Dosage: 5 MG, 2X/DAY IN MORNING AND AT BEDTIME
     Route: 048
     Dates: start: 201410, end: 20240621

REACTIONS (1)
  - Wrist surgery [Recovered/Resolved]

NARRATIVE: CASE EVENT DATE: 20240705
